FAERS Safety Report 23598797 (Version 1)
Quarter: 2024Q1

REPORT INFORMATION
  Report Type: Spontaneous
  Country: US (occurrence: US)
  Receive Date: 20240306
  Receipt Date: 20240306
  Transmission Date: 20240410
  Serious: Yes (Hospitalization, Other)
  Sender: FDA-Public Use
  Company Number: US-LUPIN PHARMACEUTICALS INC.-2024-01640

PATIENT
  Weight: 66 kg

DRUGS (4)
  1. BUPROPION [Suspect]
     Active Substance: BUPROPION
     Indication: Product used for unknown indication
     Dosage: 1000 MG
     Route: 048
  2. ESCITALOPRAM [Suspect]
     Active Substance: ESCITALOPRAM OXALATE
     Indication: Product used for unknown indication
     Dosage: UNK (FORMULATION: PILLS)
     Route: 048
  3. ARIPIPRAZOLE [Suspect]
     Active Substance: ARIPIPRAZOLE
     Indication: Product used for unknown indication
     Dosage: 100 MG
     Route: 048
  4. IBUPROFEN [Suspect]
     Active Substance: IBUPROFEN
     Indication: Product used for unknown indication
     Dosage: UNK (FORMULATION: PILLS)
     Route: 048

REACTIONS (3)
  - Suicide attempt [Recovering/Resolving]
  - Serotonin syndrome [Recovering/Resolving]
  - Intentional overdose [Unknown]
